FAERS Safety Report 8886480 (Version 2)
Quarter: 2013Q1

REPORT INFORMATION
  Report Type: Spontaneous
  Country: US (occurrence: US)
  Receive Date: 20121105
  Receipt Date: 20130207
  Transmission Date: 20140127
  Serious: Yes (Hospitalization)
  Sender: FDA-Public Use
  Company Number: US-B.I. PHARMACEUTICALS,INC./RIDGEFIELD-2012-BP-26948BP

PATIENT
  Age: 85 Year
  Sex: Female

DRUGS (10)
  1. TRADJENTA [Suspect]
     Indication: TYPE 2 DIABETES MELLITUS
     Dosage: 5 MG
     Route: 048
     Dates: start: 20120823, end: 20120924
  2. GLYPIZIDE [Concomitant]
     Dosage: 10 MG
     Route: 048
  3. LIPITOR [Concomitant]
     Indication: HYPERLIPIDAEMIA
     Dosage: 10 MG
  4. COUMADIN [Concomitant]
  5. NORVASC [Concomitant]
     Dosage: 10 MG
     Route: 048
  6. DIGOXIN [Concomitant]
     Dosage: 0.125 MCG
     Route: 048
  7. AVALIDE [Concomitant]
     Route: 048
  8. METOPROLOL [Concomitant]
     Dosage: 100 MG
     Route: 048
  9. AVALIDE [Concomitant]
  10. JANUVIA [Concomitant]

REACTIONS (1)
  - Cerebrovascular accident [Unknown]
